FAERS Safety Report 18543542 (Version 2)
Quarter: 2020Q4

REPORT INFORMATION
  Report Type: Spontaneous
  Country: ES (occurrence: ES)
  Receive Date: 20201125
  Receipt Date: 20201201
  Transmission Date: 20210114
  Serious: Yes (Other)
  Sender: FDA-Public Use
  Company Number: ES-ROCHE-2704509

PATIENT
  Age: 58 Year
  Sex: Female
  Weight: 88 kg

DRUGS (3)
  1. HERCEPTIN [Suspect]
     Active Substance: TRASTUZUMAB
     Indication: BREAST CANCER
     Route: 058
     Dates: start: 201610, end: 20201023
  2. HERCEPTIN [Suspect]
     Active Substance: TRASTUZUMAB
     Indication: BREAST CANCER
     Dosage: STANDARED DOSE
     Route: 042
     Dates: start: 20120618, end: 201610
  3. TAMOXIFENO [Concomitant]
     Active Substance: TAMOXIFEN
     Dates: start: 201212, end: 202007

REACTIONS (1)
  - Nonalcoholic fatty liver disease [Not Recovered/Not Resolved]
